FAERS Safety Report 21409730 (Version 1)
Quarter: 2022Q4

REPORT INFORMATION
  Report Type: Spontaneous
  Country: SA (occurrence: SA)
  Receive Date: 20221005
  Receipt Date: 20221005
  Transmission Date: 20230112
  Serious: Yes (Death, Life-Threatening, Hospitalization, Other)
  Sender: FDA-Public Use
  Company Number: SA-UNITED THERAPEUTICS-UNT-2022-023003

PATIENT
  Age: 28 Year
  Sex: Female

DRUGS (4)
  1. REMODULIN [Suspect]
     Active Substance: TREPROSTINIL
     Indication: Pulmonary arterial hypertension
     Dosage: UNK, CONTINUING
     Route: 041
  2. RIOCIGUAT [Suspect]
     Active Substance: RIOCIGUAT
     Indication: Pulmonary arterial hypertension
     Dosage: UNK
     Route: 048
  3. MACITENTAN [Suspect]
     Active Substance: MACITENTAN
     Indication: Pulmonary arterial hypertension
     Dosage: UNK
     Route: 065
  4. HEPARIN [Suspect]
     Active Substance: HEPARIN SODIUM
     Indication: Product used for unknown indication
     Dosage: UNK
     Route: 065

REACTIONS (23)
  - Brain death [Fatal]
  - Cerebral ischaemia [Fatal]
  - Respiratory failure [Unknown]
  - Low cardiac output syndrome [Unknown]
  - Pericardial effusion [Unknown]
  - Accelerated hypertension [Unknown]
  - Lactic acidosis [Unknown]
  - Subarachnoid haemorrhage [Unknown]
  - Hydrocephalus [Unknown]
  - Medical device site thrombosis [Unknown]
  - Haemorrhagic stroke [Unknown]
  - Right ventricular failure [Unknown]
  - Acute kidney injury [Recovered/Resolved]
  - Thrombocytopenia [Unknown]
  - Dyspnoea [Unknown]
  - Palpitations [Unknown]
  - Sinus tachycardia [Unknown]
  - Jugular vein distension [Unknown]
  - Oxygen saturation decreased [Unknown]
  - Generalised oedema [Unknown]
  - Pleural effusion [Unknown]
  - Oedema peripheral [Unknown]
  - Blood pressure decreased [Unknown]
